FAERS Safety Report 5325548-7 (Version None)
Quarter: 2007Q2

REPORT INFORMATION
  Report Type: 
  Country: None (occurrence: None)
  Receive Date: 20070515
  Receipt Date: 20070503
  Transmission Date: 20071010
  Serious: Yes (Hospitalization, Other)
  Sender: FDA-Public Use
  Company Number: TH-PFIZER INC-2007031400

PATIENT
  Age: 82 Year
  Sex: Male

DRUGS (3)
  1. SULPERAZON [Suspect]
     Indication: ACINETOBACTER INFECTION
     Route: 042
  2. CLINDAMYCIN HCL [Concomitant]
     Indication: PYREXIA
  3. FORTUM [Concomitant]

REACTIONS (1)
  - TOXIC EPIDERMAL NECROLYSIS [None]
